FAERS Safety Report 19045819 (Version 1)
Quarter: 2021Q1

REPORT INFORMATION
  Report Type: Spontaneous
  Country: CN (occurrence: CN)
  Receive Date: 20210322
  Receipt Date: 20210322
  Transmission Date: 20210420
  Serious: Yes (Hospitalization, Other)
  Sender: FDA-Public Use
  Company Number: CN-VIIV HEALTHCARE LIMITED-CN2021GSK061802

PATIENT
  Age: 29 Year
  Sex: Male

DRUGS (3)
  1. ALUVIA [Suspect]
     Active Substance: LOPINAVIR\RITONAVIR
     Indication: HIV INFECTION
     Dosage: UNK
     Route: 048
  2. KALETRA [Suspect]
     Active Substance: LOPINAVIR\RITONAVIR
     Indication: HIV INFECTION
     Dosage: UNK
     Route: 048
  3. ZIDOVUDINE + LAMIVUDINE [Suspect]
     Active Substance: LAMIVUDINE\ZIDOVUDINE
     Indication: HIV INFECTION
     Dosage: UNK
     Route: 048

REACTIONS (18)
  - Dyspepsia [Recovered/Resolved]
  - Irritability [Recovered/Resolved]
  - Pancreatitis acute [Recovered/Resolved]
  - Dyspnoea [Recovered/Resolved]
  - Systemic inflammatory response syndrome [Recovered/Resolved]
  - Abdominal pain upper [Recovered/Resolved]
  - Abdominal discomfort [Recovered/Resolved]
  - Hyperchlorhydria [Recovered/Resolved]
  - Vomiting [Recovered/Resolved]
  - Abdominal infection [Recovered/Resolved]
  - CD4 lymphocytes decreased [Recovered/Resolved]
  - Abdominal tenderness [Recovered/Resolved]
  - Metabolic acidosis [Recovered/Resolved]
  - Pain [Recovered/Resolved]
  - Nausea [Recovered/Resolved]
  - Type 2 diabetes mellitus [Recovered/Resolved]
  - Electrolyte imbalance [Recovered/Resolved]
  - Abdominal distension [Recovered/Resolved]
